FAERS Safety Report 4589543-8 (Version None)
Quarter: 2005Q1

REPORT INFORMATION
  Report Type: 
  Country: None (occurrence: None)
  Receive Date: 20050216
  Receipt Date: 20050207
  Transmission Date: 20050727
  Serious: Yes (Hospitalization)
  Sender: FDA-Public Use
  Company Number: 2005026800

PATIENT
  Age: 84 Year
  Sex: Male
  Weight: 82 kg

DRUGS (6)
  1. NEURONTIN [Suspect]
     Indication: ILL-DEFINED DISORDER
     Dosage: 800 MG (1 D), ORAL
     Route: 048
     Dates: start: 20041215, end: 20041223
  2. DANAPAROID SODIUM (DANAPAROID SODIUM) [Suspect]
     Indication: ILL-DEFINED DISORDER
     Dosage: 2250 UNITS (1 D), SUBCUTANEOUS
     Route: 058
     Dates: start: 20041215, end: 20041220
  3. PRISTINAMYCIN (PRISTINAMYCIN) [Suspect]
     Indication: ILL-DEFINED DISORDER
     Dosage: 3000 MG (1 D), ORAL
     Route: 048
     Dates: start: 20041215, end: 20041223
  4. AMIODARONE HCL [Suspect]
     Indication: ILL-DEFINED DISORDER
     Dosage: 200 MG (200 MG, 1 IN 1 D), ORAL
     Route: 048
     Dates: start: 20041210, end: 20041221
  5. ACETYLSALICYLIC ACID SRT [Concomitant]
  6. HEPARIN CALCIUM [Concomitant]

REACTIONS (3)
  - CONDITION AGGRAVATED [None]
  - OLIGURIA [None]
  - THROMBOCYTOPENIA [None]
